FAERS Safety Report 5178884-1 (Version None)
Quarter: 2006Q4

REPORT INFORMATION
  Report Type: 
  Country: None (occurrence: None)
  Receive Date: 20061208
  Receipt Date: 20061127
  Transmission Date: 20070319
  Serious: Yes (Hospitalization)
  Sender: FDA-Public Use
  Company Number: 2006-03073

PATIENT
  Sex: Male
  Weight: 85.8 kg

DRUGS (1)
  1. VELCADE [Suspect]
     Indication: MULTIPLE MYELOMA
     Dosage: 2.75 MG, UNK, INTRAVENOUS
     Route: 042
     Dates: start: 20060401, end: 20060801

REACTIONS (4)
  - FEELING COLD [None]
  - HYPOAESTHESIA [None]
  - MUSCULAR WEAKNESS [None]
  - NEUROPATHY [None]
